FAERS Safety Report 6425578-8 (Version None)
Quarter: 2009Q4

REPORT INFORMATION
  Report Type: 
  Country: None (occurrence: None)
  Receive Date: 20091103
  Receipt Date: 20091021
  Transmission Date: 20100525
  Serious: Yes (Other)
  Sender: FDA-Public Use
  Company Number: US-ELI_LILLY_AND_COMPANY-US200910005265

PATIENT
  Sex: Female

DRUGS (3)
  1. CYMBALTA [Suspect]
     Indication: FIBROMYALGIA
     Dosage: 20 MG, DAILY (1/D)
     Dates: start: 20070101
  2. PROTONIX [Concomitant]
     Dosage: 40 MG, DAILY (1/D)
  3. IBUPROFEN [Concomitant]
     Dosage: 1 D/F, AS NEEDED

REACTIONS (4)
  - FOREIGN BODY IN EYE [None]
  - RETINAL DETACHMENT [None]
  - RETINAL TEAR [None]
  - VISION BLURRED [None]
